FAERS Safety Report 10173029 (Version 4)
Quarter: 2014Q4

REPORT INFORMATION
  Report Type: Spontaneous
  Country: KW (occurrence: KW)
  Receive Date: 20140515
  Receipt Date: 20141104
  Transmission Date: 20150528
  Serious: Yes (Hospitalization, Other)
  Sender: FDA-Public Use
  Company Number: PHHY2014KW055710

PATIENT
  Sex: Female

DRUGS (4)
  1. GILENYA [Suspect]
     Active Substance: FINGOLIMOD HYDROCHLORIDE
     Dosage: 0.5 MG, QOD
     Route: 048
     Dates: start: 201310, end: 201311
  2. GILENYA [Suspect]
     Active Substance: FINGOLIMOD HYDROCHLORIDE
     Dosage: 0.5 MG, QD
     Route: 048
     Dates: start: 201311, end: 201402
  3. NATALIZUMAB [Suspect]
     Active Substance: NATALIZUMAB
     Indication: PRODUCT USED FOR UNKNOWN INDICATION
     Dosage: 300 MG, UNK
     Route: 042
     Dates: start: 20140421
  4. GILENYA [Suspect]
     Active Substance: FINGOLIMOD HYDROCHLORIDE
     Indication: MULTIPLE SCLEROSIS
     Dosage: 0.5 MG, QD
     Route: 048
     Dates: start: 201304, end: 201309

REACTIONS (16)
  - Gait disturbance [Unknown]
  - Multiple sclerosis relapse [Unknown]
  - Lymphopenia [Unknown]
  - Coma [Unknown]
  - Somnolence [Unknown]
  - Dysarthria [Unknown]
  - Bladder disorder [Unknown]
  - Unresponsive to stimuli [Unknown]
  - Immune reconstitution inflammatory syndrome [Unknown]
  - Cognitive disorder [Unknown]
  - Pain [Unknown]
  - Hemiplegia [Recovering/Resolving]
  - Hemiparesis [Unknown]
  - Gaze palsy [Unknown]
  - Corneal light reflex test abnormal [Unknown]
  - Central nervous system lesion [Unknown]
